FAERS Safety Report 14919348 (Version 1)
Quarter: 2018Q2

REPORT INFORMATION
  Report Type: Spontaneous
  Country: US (occurrence: US)
  Receive Date: 20180502
  Receipt Date: 20180502
  Transmission Date: 20180711
  Serious: Yes (Hospitalization)
  Sender: FDA-Public Use
  Company Number: None

PATIENT
  Age: 16 Year
  Sex: Female

DRUGS (3)
  1. TACROLIMUS 1 MG CAP [Suspect]
     Active Substance: TACROLIMUS
     Indication: RENAL TRANSPLANT
     Route: 048
     Dates: start: 20160921, end: 201804
  2. PROCRIT [Concomitant]
     Active Substance: ERYTHROPOIETIN
  3. MYCOPHENOLATE 250 MG [Suspect]
     Active Substance: MYCOPHENOLIC ACID
     Indication: RENAL TRANSPLANT
     Dosage: ?          OTHER DOSE:500MG/AM, 700MG/PM;?
     Route: 048
     Dates: start: 20160921, end: 201804

REACTIONS (1)
  - Transplant rejection [None]

NARRATIVE: CASE EVENT DATE: 2018
